FAERS Safety Report 15388020 (Version 1)
Quarter: 2018Q3

REPORT INFORMATION
  Report Type: Spontaneous
  Country: DE (occurrence: DE)
  Receive Date: 20180915
  Receipt Date: 20180915
  Transmission Date: 20181010
  Serious: Yes (Congenital Anomaly, Other)
  Sender: FDA-Public Use
  Company Number: DE-AUROBINDO-AUR-APL-2018-045539

PATIENT
  Age: 1 Day
  Sex: Male
  Weight: 4.03 kg

DRUGS (12)
  1. AMITRIPTYLIN [Suspect]
     Active Substance: AMITRIPTYLINE
     Indication: SLEEP DISORDER
  2. LEMTRADA [Concomitant]
     Active Substance: ALEMTUZUMAB
     Indication: MULTIPLE SCLEROSIS
     Dosage: UNK
     Route: 064
  3. ZOLPIDEM [Suspect]
     Active Substance: ZOLPIDEM\ZOLPIDEM TARTRATE
     Indication: SLEEP DISORDER
     Dosage: 10 [MG/D (BIS 5) ]
     Route: 064
     Dates: start: 20170616, end: 20170727
  4. DOXYLAMINE [Suspect]
     Active Substance: DOXYLAMINE
     Indication: SLEEP DISORDER
     Dosage: 45 [MG/D ]/ 15 ? 45 MG/D ()
     Route: 064
     Dates: start: 20170731, end: 20180215
  5. AMITRIPTYLIN [Suspect]
     Active Substance: AMITRIPTYLINE
     Indication: SLEEP DISORDER
     Dosage: 12.5 [MG/D ]
     Route: 064
     Dates: start: 20170721, end: 20170731
  6. ZOLPIDEM [Suspect]
     Active Substance: ZOLPIDEM\ZOLPIDEM TARTRATE
     Indication: SLEEP DISORDER
  7. DOXYLAMINE [Suspect]
     Active Substance: DOXYLAMINE
     Indication: SLEEP DISORDER
  8. ZINC. [Concomitant]
     Active Substance: ZINC
     Indication: HERPES ZOSTER
     Dosage: UNK
     Route: 064
     Dates: start: 20180110, end: 20180112
  9. L?THYROXIN                         /00068001/ [Concomitant]
     Active Substance: LEVOTHYROXINE
     Indication: AUTOIMMUNE THYROIDITIS
     Dosage: 100 [?G/D (BIS 50) ]
     Route: 064
     Dates: start: 20170618, end: 20180315
  10. FEMIBION                           /01597501/ [Concomitant]
     Active Substance: CALCIUM PHOSPHATE, DIBASIC, ANHYDROUS\FERROUS SUCCINATE\MAGNESIUM HYDROXIDE
     Indication: PROPHYLAXIS OF NEURAL TUBE DEFECT
     Dosage: UNK
     Route: 064
     Dates: start: 20170616, end: 20170731
  11. DRONABINOL. [Concomitant]
     Active Substance: DRONABINOL
     Indication: PAIN
     Dosage: UNK
     Route: 064
     Dates: start: 20170616, end: 20170719
  12. TANNOLACT [Concomitant]
     Indication: HERPES ZOSTER
     Dosage: UNK
     Route: 064
     Dates: start: 20180110, end: 20180112

REACTIONS (2)
  - Ventricular septal defect [Unknown]
  - Large for dates baby [Unknown]

NARRATIVE: CASE EVENT DATE: 20180315
